FAERS Safety Report 7772913-4 (Version None)
Quarter: 2011Q3

REPORT INFORMATION
  Report Type: 
  Country: None (occurrence: None)
  Receive Date: 20110922
  Receipt Date: 20100115
  Transmission Date: 20111222
  Serious: No
  Sender: FDA-Public Use
  Company Number: US-ASTRAZENECA-2006UW08236

PATIENT
  Age: 14558 Day
  Sex: Female
  Weight: 154.2 kg

DRUGS (6)
  1. HALDOL [Concomitant]
     Dates: start: 20000101
  2. RISPERDAL [Concomitant]
     Dates: start: 19980101
  3. THORAZINE [Concomitant]
     Dates: start: 19980101, end: 19990101
  4. SEROQUEL [Suspect]
     Indication: BIPOLAR I DISORDER
     Route: 048
     Dates: start: 20040101, end: 20080101
  5. CLOZAPINE [Concomitant]
     Dates: start: 20010101
  6. SEROQUEL [Suspect]
     Dosage: 25 TO 100 MG
     Route: 048
     Dates: start: 20050526, end: 20080218

REACTIONS (4)
  - ARTHRITIS [None]
  - TYPE 2 DIABETES MELLITUS [None]
  - OBESITY [None]
  - HYPERLIPIDAEMIA [None]
